FAERS Safety Report 7096361-8 (Version None)
Quarter: 2010Q4

REPORT INFORMATION
  Report Type: 
  Country: None (occurrence: None)
  Receive Date: 20101111
  Receipt Date: 20090825
  Transmission Date: 20110411
  Serious: No
  Sender: FDA-Public Use
  Company Number: US-KINGPHARMUSA00001-K200901052

PATIENT
  Age: 8 Year
  Sex: Male

DRUGS (1)
  1. EPIPEN JR. [Suspect]
     Dosage: .15 MG, SINGLE

REACTIONS (2)
  - ACCIDENTAL EXPOSURE [None]
  - EXPIRED DRUG ADMINISTERED [None]
